FAERS Safety Report 11458098 (Version 2)
Quarter: 2015Q3

REPORT INFORMATION
  Report Type: Report from Study
  Country: JP (occurrence: JP)
  Receive Date: 20150904
  Receipt Date: 20150910
  Transmission Date: 20151125
  Serious: Yes (Other)
  Sender: FDA-Public Use
  Company Number: JP-ASTELLAS-2015US031577

PATIENT

DRUGS (2)
  1. ERLOTINIB [Suspect]
     Active Substance: ERLOTINIB
     Indication: LUNG CARCINOMA CELL TYPE UNSPECIFIED RECURRENT
     Dosage: 100 MG/BODY AT LEVEL 1, 28 DAY CYCLE (DAY 1-28)
     Route: 065
  2. IRINOTECAN [Suspect]
     Active Substance: IRINOTECAN
     Indication: LUNG CARCINOMA CELL TYPE UNSPECIFIED RECURRENT
     Dosage: 80 MG/M2 AT LEVEL 1, 28 DAY CYCLE (DAYS 1,8 AND 15)
     Route: 065

REACTIONS (1)
  - Amylase increased [Unknown]
